FAERS Safety Report 22616021 (Version 2)
Quarter: 2023Q2

REPORT INFORMATION
  Report Type: Spontaneous
  Country: US (occurrence: US)
  Receive Date: 20230619
  Receipt Date: 20230622
  Transmission Date: 20230722
  Serious: Yes (Other)
  Sender: FDA-Public Use
  Company Number: US-TEVA-2023-US-2897991

PATIENT
  Age: 62 Year
  Sex: Female

DRUGS (2)
  1. COPAXONE [Suspect]
     Active Substance: GLATIRAMER ACETATE
     Indication: Product used for unknown indication
     Dosage: FORM STRENGTH: UNKNOWN
     Route: 065
  2. ARSENIC [Suspect]
     Active Substance: ARSENIC
     Indication: Chemical submission
     Route: 065

REACTIONS (4)
  - Neoplasm [Unknown]
  - Central nervous system lesion [Unknown]
  - Victim of chemical submission [Unknown]
  - Mental disorder [Unknown]
